FAERS Safety Report 9787755 (Version 1)
Quarter: 2013Q4

REPORT INFORMATION
  Report Type: Spontaneous
  Country: US (occurrence: None)
  Receive Date: 20131227
  Receipt Date: 20131227
  Transmission Date: 20140711
  Serious: Yes (Hospitalization, Disabling)
  Sender: FDA-Public Use
  Company Number: None

PATIENT
  Age: 49 Year
  Sex: Male
  Weight: 132.45 kg

DRUGS (4)
  1. INVOKANA (CAMAGLIFLOZIN JANSSEN [Suspect]
     Indication: DIABETES MELLITUS
     Dosage: 10MG ?1 PER DAY?SUPPER?ORAL
     Route: 048
     Dates: end: 20131011
  2. LISINOPRIL [Concomitant]
  3. LANTIS [Concomitant]
  4. NOVOLOG [Concomitant]

REACTIONS (4)
  - Weight decreased [None]
  - Jaundice [None]
  - Cholecystitis chronic [None]
  - Cholelithiasis [None]
